FAERS Safety Report 4300863-4 (Version None)
Quarter: 2004Q1

REPORT INFORMATION
  Report Type: 
  Country: None (occurrence: None)
  Receive Date: 20040219
  Receipt Date: 20040204
  Transmission Date: 20041129
  Serious: Yes (Hospitalization)
  Sender: FDA-Public Use
  Company Number: CIP04000297

PATIENT
  Age: 80 Year
  Sex: Female

DRUGS (2)
  1. DIDRONEL [Suspect]
     Indication: OSTEOPOROSIS
     Dosage: 1 TABLET AT BEDTIME, ORAL
     Route: 048
     Dates: start: 20010319, end: 20031011
  2. BENET (RISEDRONATE SODIUM) TABLET [Concomitant]

REACTIONS (3)
  - ASPARTATE AMINOTRANSFERASE INCREASED [None]
  - BLOOD AMYLASE INCREASED [None]
  - BLOOD CREATINE PHOSPHOKINASE INCREASED [None]
